FAERS Safety Report 5959039-7 (Version None)
Quarter: 2008Q4

REPORT INFORMATION
  Report Type: 
  Country: None (occurrence: None)
  Receive Date: 20081120
  Receipt Date: 20081114
  Transmission Date: 20090506
  Serious: Yes (Other)
  Sender: FDA-Public Use
  Company Number: US-JNJFOC-20081104197

PATIENT
  Sex: Female
  Weight: 76.66 kg

DRUGS (9)
  1. FLEXERIL [Suspect]
     Indication: SCOLIOSIS
     Route: 048
  2. TOPAMAX [Concomitant]
     Indication: MIGRAINE
  3. AXERT [Concomitant]
     Indication: MIGRAINE
     Route: 048
  4. SYNTHROID [Concomitant]
     Indication: THYROID DISORDER
     Route: 048
  5. CELEBREX [Concomitant]
     Indication: PAIN
     Route: 048
  6. PHENERGAN HCL [Concomitant]
     Indication: NAUSEA
     Route: 048
  7. IMITREX [Concomitant]
     Indication: MIGRAINE
  8. ACIPHEX [Concomitant]
     Indication: GASTROOESOPHAGEAL REFLUX DISEASE
  9. ACTONEL [Concomitant]
     Indication: OSTEOPOROSIS

REACTIONS (5)
  - DEPRESSION [None]
  - GASTROOESOPHAGEAL REFLUX DISEASE [None]
  - INTENTIONAL DRUG MISUSE [None]
  - MIGRAINE [None]
  - OSTEOPOROSIS [None]
